FAERS Safety Report 14370045 (Version 3)
Quarter: 2021Q2

REPORT INFORMATION
  Report Type: Report from Study
  Country: None (occurrence: US)
  Receive Date: 20180110
  Receipt Date: 20210513
  Transmission Date: 20210716
  Serious: Yes (Hospitalization, Other)
  Sender: FDA-Public Use
  Company Number: US-ABBVIE-18P-163-2210415-00

PATIENT
  Age: 52 Year
  Sex: Male
  Weight: 72 kg

DRUGS (11)
  1. MESALAMINE. [Concomitant]
     Active Substance: MESALAMINE
     Indication: COLITIS ULCERATIVE
     Dosage: MOVED OUT OF STATE; PROVIDER DECIDED TO STOP SINCE THE PATIENT IS ON A BIOLOGIC
     Route: 048
     Dates: start: 20160315, end: 20160712
  2. FOLATE [Concomitant]
     Active Substance: FOLATE SODIUM
     Indication: ANAEMIA
     Route: 048
     Dates: start: 20160616
  3. MESALAMINE. [Concomitant]
     Active Substance: MESALAMINE
     Dosage: MOVED OUT OF STATE; PROVIDER DECIDED TO STOP MESALAMINE SINCE THE PATIENT IS ON A BIOLOGIC
     Route: 048
     Dates: start: 20160315, end: 20160712
  4. FOLATE [Concomitant]
     Active Substance: FOLATE SODIUM
     Indication: ANAEMIA PROPHYLAXIS
  5. HUMIRA [Suspect]
     Active Substance: ADALIMUMAB
     Indication: COLITIS ULCERATIVE
     Route: 058
     Dates: start: 201506, end: 20160527
  6. TAMSULOSIN [Concomitant]
     Active Substance: TAMSULOSIN
     Indication: URINARY RETENTION
     Route: 048
     Dates: start: 20151106
  7. COLACE [Concomitant]
     Active Substance: DOCUSATE SODIUM
     Indication: CONSTIPATION
     Route: 048
     Dates: start: 20151023, end: 20160927
  8. FERROUS SULFATE. [Concomitant]
     Active Substance: FERROUS SULFATE
     Indication: IRON DEFICIENCY ANAEMIA
     Route: 048
     Dates: start: 20160712
  9. HYDROCHLOROTHIAZIDE. [Concomitant]
     Active Substance: HYDROCHLOROTHIAZIDE
     Indication: PROPHYLAXIS
     Route: 048
     Dates: start: 20151023
  10. MESALAMINE SR [Concomitant]
     Indication: COLITIS ULCERATIVE
     Route: 048
     Dates: start: 2015, end: 2017
  11. PANTOPRAZOLE [Concomitant]
     Active Substance: PANTOPRAZOLE
     Indication: PRODUCT USED FOR UNKNOWN INDICATION
     Dosage: REASON NOT MENTIONED; LIKELY FOR DYSPEPSIA/HEARTBURN SINCE NO DOCUMENTED PUD OR GERD
     Route: 048
     Dates: start: 20160404

REACTIONS (4)
  - Abscess limb [Recovered/Resolved]
  - Perirectal abscess [Recovered/Resolved]
  - Anal fistula [Recovered/Resolved]
  - Cellulitis [Recovered/Resolved]

NARRATIVE: CASE EVENT DATE: 20160927
